FAERS Safety Report 10182754 (Version 1)
Quarter: 2014Q2

REPORT INFORMATION
  Report Type: Spontaneous
  Country: GB (occurrence: None)
  Receive Date: 20140516
  Receipt Date: 20140516
  Transmission Date: 20141212
  Serious: Yes (Hospitalization, Other)
  Sender: FDA-Public Use
  Company Number: CL-562-2014

PATIENT
  Age: 35 Year
  Sex: Female

DRUGS (2)
  1. METRONIDAZOLE [Suspect]
     Indication: PELVIC INFLAMMATORY DISEASE
     Dosage: 500 MG THRICE DAILY, UNK
  2. CEFUROXIME [Suspect]
     Indication: PELVIC INFLAMMATORY DISEASE
     Dosage: 750 MG THRICE DAILY, UNK

REACTIONS (14)
  - Psychotic disorder [None]
  - Drug interaction [None]
  - Feeling abnormal [None]
  - Irritability [None]
  - Anger [None]
  - Aggression [None]
  - Insomnia [None]
  - Depressed mood [None]
  - Feeling guilty [None]
  - Decreased appetite [None]
  - Hallucination, auditory [None]
  - Delusion [None]
  - Fear [None]
  - Abnormal behaviour [None]
